FAERS Safety Report 6608573-5 (Version None)
Quarter: 2010Q1

REPORT INFORMATION
  Report Type: 
  Country: None (occurrence: None)
  Receive Date: 20100301
  Receipt Date: 20091223
  Transmission Date: 20100710
  Serious: No
  Sender: FDA-Public Use
  Company Number: US-BAYER-201012193BCC

PATIENT
  Age: 3 Year
  Sex: Female

DRUGS (1)
  1. ALEVE [Suspect]
     Indication: ACCIDENTAL DRUG INTAKE BY CHILD
     Route: 048

REACTIONS (1)
  - NO ADVERSE EVENT [None]
